FAERS Safety Report 9373869 (Version 1)
Quarter: 2013Q2

REPORT INFORMATION
  Report Type: Spontaneous
  Country: US (occurrence: US)
  Receive Date: 20130628
  Receipt Date: 20130628
  Transmission Date: 20140414
  Serious: Yes (Other)
  Sender: FDA-Public Use
  Company Number: US-AMGEN-USASP2013045083

PATIENT
  Age: 68 Year
  Sex: Female

DRUGS (4)
  1. PROLIA [Suspect]
     Indication: OSTEOPOROSIS POSTMENOPAUSAL
     Dosage: UNK
     Dates: start: 201206
  2. LIPITOR [Concomitant]
  3. PROZAC [Concomitant]
  4. THYROID [Concomitant]

REACTIONS (4)
  - Pelvic mass [Unknown]
  - Uterine disorder [Unknown]
  - Ovarian disorder [Unknown]
  - Fallopian tube disorder [Unknown]
